FAERS Safety Report 20440635 (Version 1)
Quarter: 2022Q1

REPORT INFORMATION
  Report Type: Spontaneous
  Country: RU (occurrence: RU)
  Receive Date: 20220207
  Receipt Date: 20220207
  Transmission Date: 20220423
  Serious: Yes (Life-Threatening, Other)
  Sender: FDA-Public Use
  Company Number: RU-009507513-2202RUS001337

PATIENT
  Age: 61 Year
  Sex: Male

DRUGS (2)
  1. PEMBROLIZUMAB [Suspect]
     Active Substance: PEMBROLIZUMAB
     Dosage: 10 MILLIGRAM/KILOGRAM
     Route: 042
     Dates: start: 20201114, end: 20220118
  2. INLYTA [Suspect]
     Active Substance: AXITINIB
     Indication: Metastatic renal cell carcinoma
     Dosage: 5 MG, 2X/DAY; ORAL
     Route: 048
     Dates: start: 20201114, end: 20220118

REACTIONS (3)
  - Toxicity to various agents [Unknown]
  - Diabetes mellitus [Unknown]
  - Malignant neoplasm progression [Unknown]

NARRATIVE: CASE EVENT DATE: 20210117
